FAERS Safety Report 10678015 (Version 1)
Quarter: 2014Q4

REPORT INFORMATION
  Report Type: Spontaneous
  Country: US (occurrence: US)
  Receive Date: 20141229
  Receipt Date: 20141229
  Transmission Date: 20150529
  Serious: No
  Sender: FDA-Public Use
  Company Number: US-BIOGENIDEC-2014BI137042

PATIENT
  Age: 35 Year
  Sex: Female

DRUGS (5)
  1. IVIG [Concomitant]
     Active Substance: HUMAN IMMUNOGLOBULIN G
  2. DHEA [Concomitant]
     Active Substance: DEHYDROEPIANDROSTERONE-3-SULFATE SODIUM
  3. PRENATAL VITAMIN [Concomitant]
     Active Substance: VITAMINS
  4. BIOTIN [Concomitant]
     Active Substance: BIOTIN
  5. TECFIDERA [Suspect]
     Active Substance: DIMETHYL FUMARATE
     Indication: RELAPSING-REMITTING MULTIPLE SCLEROSIS
     Route: 048
     Dates: start: 201402, end: 201412

REACTIONS (10)
  - Eyelid disorder [Recovered/Resolved]
  - Fear [Unknown]
  - Blood testosterone decreased [Unknown]
  - Peroneal nerve palsy [Recovered/Resolved]
  - Skin irritation [Unknown]
  - Blood cortisol increased [Unknown]
  - Alopecia [Unknown]
  - Pain [Unknown]
  - Scab [Unknown]
  - Musculoskeletal disorder [Recovered/Resolved]

NARRATIVE: CASE EVENT DATE: 2014
